FAERS Safety Report 6398590-5 (Version None)
Quarter: 2009Q4

REPORT INFORMATION
  Report Type: 
  Country: None (occurrence: None)
  Receive Date: 20091007
  Receipt Date: 20090930
  Transmission Date: 20100525
  Serious: Yes (Death, Hospitalization)
  Sender: FDA-Public Use
  Company Number: ENTC2009-0311

PATIENT
  Age: 74 Year
  Sex: Male

DRUGS (2)
  1. STALEVO 100 [Suspect]
     Indication: PARKINSON'S DISEASE
     Dosage: 100/25/200 MG; 2 TABLETS PER DAY; ORAL, 100/25/200 MG; 5 TABLETS PER DAY, ORAL
     Route: 048
     Dates: start: 20070901
  2. STALEVO 100 [Suspect]
     Indication: PARKINSON'S DISEASE
     Dosage: 100/25/200 MG; 2 TABLETS PER DAY; ORAL, 100/25/200 MG; 5 TABLETS PER DAY, ORAL
     Route: 048
     Dates: start: 20070901

REACTIONS (6)
  - CONDITION AGGRAVATED [None]
  - HALLUCINATION [None]
  - JOINT STIFFNESS [None]
  - MUSCULOSKELETAL STIFFNESS [None]
  - PNEUMONIA [None]
  - URINARY TRACT INFECTION [None]
